FAERS Safety Report 22523323 (Version 2)
Quarter: 2024Q1

REPORT INFORMATION
  Report Type: Spontaneous
  Country: AU (occurrence: AU)
  Receive Date: 20230606
  Receipt Date: 20240118
  Transmission Date: 20240409
  Serious: Yes (Other)
  Sender: FDA-Public Use
  Company Number: AU-BAUSCHBL-2023BNL004742

PATIENT
  Age: 15 Year
  Sex: Female

DRUGS (6)
  1. PREDNISOLONE [Suspect]
     Active Substance: PREDNISOLONE
     Indication: Juvenile idiopathic arthritis
     Route: 065
     Dates: start: 20210810, end: 20211110
  2. ADALIMUMAB [Suspect]
     Active Substance: ADALIMUMAB\ISOPROPYL ALCOHOL
     Indication: Juvenile idiopathic arthritis
     Dosage: (FORTNIGHTLY) (TO BE CEASED ONCE SECUKINUMAB AVAILABLE)
     Route: 058
     Dates: start: 20220301
  3. METHOTREXATE [Suspect]
     Active Substance: METHOTREXATE
     Indication: Juvenile idiopathic arthritis
     Route: 048
     Dates: start: 20210713, end: 20230328
  4. PIROXICAM [Suspect]
     Active Substance: PIROXICAM
     Indication: Juvenile idiopathic arthritis
     Route: 065
  5. SULFASALAZINE [Concomitant]
     Active Substance: SULFASALAZINE
     Indication: Product used for unknown indication
     Dosage: INTERVAL: 1 DAY
     Route: 065
  6. HYRIMOZ (ADALIMUMAB) [Concomitant]
     Indication: Product used for unknown indication
     Dosage: HYRIMOZ PRE-FILLED SYRINGE+X100L

REACTIONS (4)
  - Juvenile idiopathic arthritis [Not Recovered/Not Resolved]
  - Back pain [Not Recovered/Not Resolved]
  - Pain in extremity [Not Recovered/Not Resolved]
  - Osteitis [Unknown]

NARRATIVE: CASE EVENT DATE: 20230327
